FAERS Safety Report 4309881-3 (Version None)
Quarter: 2004Q1

REPORT INFORMATION
  Report Type: 
  Country: None (occurrence: None)
  Receive Date: 20040303
  Receipt Date: 20040114
  Transmission Date: 20041129
  Serious: Yes (Hospitalization)
  Sender: FDA-Public Use
  Company Number: US-BRISTOL-MYERS SQUIBB COMPANY-12478319

PATIENT
  Age: 10 Year
  Sex: Female

DRUGS (1)
  1. ABILIFY [Suspect]
     Route: 048
     Dates: start: 20040113, end: 20040113

REACTIONS (5)
  - ACCIDENTAL EXPOSURE [None]
  - ATAXIA [None]
  - DYSTONIA [None]
  - LETHARGY [None]
  - TREMOR [None]
